FAERS Safety Report 10715361 (Version 3)
Quarter: 2015Q1

REPORT INFORMATION
  Report Type: Spontaneous
  Country: JP (occurrence: JP)
  Receive Date: 20150116
  Receipt Date: 20150226
  Transmission Date: 20150721
  Serious: Yes (Other)
  Sender: FDA-Public Use
  Company Number: JP-PFIZER INC-2015017076

PATIENT
  Age: 74 Year
  Sex: Male

DRUGS (11)
  1. FENELMIN [Concomitant]
     Dosage: UNK
     Dates: start: 20141113
  2. TENELIA [Concomitant]
     Active Substance: CITALOPRAM HYDROBROMIDE
  3. POSTERISAN [Concomitant]
     Active Substance: LIDOCAINE
     Dosage: UNK
     Dates: start: 20141109
  4. SEIBULE [Suspect]
     Active Substance: MIGLITOL
     Indication: DIABETES MELLITUS
     Dosage: 25 MG, 3X/DAY
     Route: 048
     Dates: start: 20141118, end: 20141215
  5. TEGRETOL [Suspect]
     Active Substance: CARBAMAZEPINE
     Indication: PAIN
     Dosage: 200 MG, UNK
     Route: 048
     Dates: start: 20141104
  6. FOSAMAX [Concomitant]
     Active Substance: ALENDRONATE SODIUM
     Dosage: UNK
  7. CALONAL [Suspect]
     Active Substance: ACETAMINOPHEN
     Indication: PAIN
     Dosage: 400 MG, AS NEEDED
     Route: 048
     Dates: start: 20141005
  8. PREDONINE [Concomitant]
     Active Substance: PREDNISOLONE\PREDNISOLONE ACETATE\PREDNISOLONE SODIUM SUCCINATE
     Dosage: UNK
  9. HUMULIN R [Concomitant]
     Active Substance: INSULIN HUMAN
     Dosage: UNK
  10. FAMOTIDINE. [Concomitant]
     Active Substance: FAMOTIDINE
     Dosage: UNK
     Dates: start: 20140921
  11. ALLOPURINOL. [Concomitant]
     Active Substance: ALLOPURINOL
     Dosage: UNK
     Dates: start: 20140921

REACTIONS (1)
  - Hepatic function abnormal [Recovering/Resolving]

NARRATIVE: CASE EVENT DATE: 20141125
